FAERS Safety Report 5612330-6 (Version None)
Quarter: 2008Q1

REPORT INFORMATION
  Report Type: 
  Country: None (occurrence: None)
  Receive Date: 20080204
  Receipt Date: 20080130
  Transmission Date: 20080703
  Serious: Yes (Death, Hospitalization, Other)
  Sender: FDA-Public Use
  Company Number: ZA-AVENTIS-200810752GDDC

PATIENT
  Age: 71 Year
  Sex: Male

DRUGS (6)
  1. TAXOTERE [Suspect]
     Dates: start: 20080114
  2. CORTISONE [Concomitant]
     Indication: PREMEDICATION
  3. KYTRIL                             /01178101/ [Concomitant]
     Indication: NAUSEA
     Dates: start: 20080114, end: 20080116
  4. MAXOLON [Concomitant]
     Indication: NAUSEA
     Dates: start: 20080114, end: 20080116
  5. VITAMINS NOS [Concomitant]
  6. PARACETAMOL [Concomitant]
     Indication: PAIN

REACTIONS (3)
  - RENAL FAILURE [None]
  - RHABDOMYOLYSIS [None]
  - SEPTIC SHOCK [None]
